FAERS Safety Report 9474285 (Version 4)
Quarter: 2013Q4

REPORT INFORMATION
  Report Type: Report from Study
  Country: BE (occurrence: BE)
  Receive Date: 20130823
  Receipt Date: 20131122
  Transmission Date: 20140711
  Serious: No
  Sender: FDA-Public Use
  Company Number: PHHY2013BE091439

PATIENT
  Sex: Female

DRUGS (6)
  1. FTY 720 [Suspect]
     Indication: MULTIPLE SCLEROSIS
     Route: 048
     Dates: start: 20120507, end: 20120803
  2. GABAPENTINE [Concomitant]
     Dosage: 300 MG, TID
     Dates: start: 20130219
  3. BETAHISTIDINA [Concomitant]
     Dosage: 16 MG, TID
     Dates: start: 2011
  4. LIORESAL [Concomitant]
     Dosage: 25 MG, TID
     Dates: start: 20060314
  5. SIMVASTATINE [Concomitant]
     Dosage: 40 MG, UNK
     Dates: start: 2011
  6. AVONEX [Concomitant]
     Dates: start: 20130603

REACTIONS (1)
  - Migraine with aura [Recovered/Resolved]
